FAERS Safety Report 9345169 (Version 2)
Quarter: 2013Q3

REPORT INFORMATION
  Report Type: Report from Study
  Country: US (occurrence: US)
  Receive Date: 20130612
  Receipt Date: 20130702
  Transmission Date: 20140515
  Serious: Yes (Hospitalization)
  Sender: FDA-Public Use
  Company Number: US-US-EMD SERONO, INC.-7214783

PATIENT
  Age: 34 Year
  Sex: Female

DRUGS (4)
  1. REBIF [Suspect]
     Indication: MULTIPLE SCLEROSIS
     Route: 058
     Dates: start: 20120710
  2. REBIF [Suspect]
     Route: 058
     Dates: end: 201305
  3. REBIF [Suspect]
     Route: 058
     Dates: start: 20130624
  4. TYLENOL                            /00020001/ [Concomitant]
     Indication: HEADACHE

REACTIONS (2)
  - Thrombosis [Recovering/Resolving]
  - Headache [Not Recovered/Not Resolved]
